FAERS Safety Report 7363111-7 (Version None)
Quarter: 2011Q1

REPORT INFORMATION
  Report Type: 
  Country: None (occurrence: None)
  Receive Date: 20110321
  Receipt Date: 20100909
  Transmission Date: 20110831
  Serious: Yes (Other)
  Sender: FDA-Public Use
  Company Number: US-BAYER-201019697NA

PATIENT
  Sex: Female
  Weight: 57 kg

DRUGS (24)
  1. YASMIN [Suspect]
     Indication: PREMENSTRUAL SYNDROME
     Dosage: UNK
     Route: 048
  2. YAZ [Suspect]
     Indication: PRODUCT USED FOR UNKNOWN INDICATION
     Route: 048
  3. UNCODEABLE ^UNCLASSIFIABLE^ [Concomitant]
     Dosage: 100 MG, BID
     Route: 048
  4. UNCODEABLE ^UNCLASSIFIABLE^ [Concomitant]
     Dosage: 500 MG, UNK
     Route: 048
     Dates: start: 20070913
  5. VESICARE [Concomitant]
     Dosage: UNK
     Route: 048
     Dates: start: 20091105
  6. UNCODEABLE ^UNCLASSIFIABLE^ [Concomitant]
     Indication: ATTENTION DEFICIT/HYPERACTIVITY DISORDER
     Dosage: 30 MG, QD
     Route: 048
     Dates: start: 20030101
  7. XANAX [Concomitant]
     Indication: ANXIETY
     Dosage: 0.25 MG, PRN
     Route: 048
  8. VALTREX [Concomitant]
     Indication: HERPES SIMPLEX
     Dosage: 1 G, BID
     Route: 048
  9. SULFAMETHOXAZOLE AND TRIMETHOPRIM [Concomitant]
     Dosage: UNK
     Route: 048
     Dates: start: 20060823
  10. BIOTIN [Concomitant]
     Route: 048
  11. OCELLA [Suspect]
     Indication: PREMENSTRUAL SYNDROME
     Dosage: UNK UNK, QD
     Route: 048
  12. XANAX [Concomitant]
     Indication: PANIC ATTACK
  13. UNCODEABLE ^UNCLASSIFIABLE^ [Concomitant]
     Dosage: 75 MG, UNK
     Route: 048
     Dates: start: 20080125
  14. UNCODEABLE ^UNCLASSIFIABLE^ [Concomitant]
     Dosage: 90 UNK, UNK
     Dates: start: 20070913
  15. UNCODEABLE ^UNCLASSIFIABLE^ [Concomitant]
     Dosage: UNK
     Route: 048
     Dates: start: 20070914
  16. HYDROCODONE BITARTRATE AND ACETAMINOPHEN [Concomitant]
     Indication: PAIN
     Dosage: UNK
     Route: 048
     Dates: start: 20060606
  17. UNCODEABLE ^UNCLASSIFIABLE^ [Concomitant]
     Dosage: 10 MG, UNK
     Route: 048
     Dates: start: 20071018
  18. UNCODEABLE ^UNCLASSIFIABLE^ [Concomitant]
     Dosage: 60 MG, UNK
     Route: 048
     Dates: start: 20090616
  19. BUPROPION HYDROCHLORIDE [Concomitant]
     Dosage: 300 MG, UNK
     Route: 048
     Dates: start: 20091224
  20. UNCODEABLE ^UNCLASSIFIABLE^ [Concomitant]
     Dosage: 4 MG, UNK
     Route: 048
     Dates: start: 20071025
  21. UNCODEABLE ^UNCLASSIFIABLE^ [Concomitant]
     Dosage: 25 MG, UNK
     Route: 048
     Dates: start: 20071126
  22. ABILIFY [Concomitant]
     Dosage: 5 MG, UNK
     Route: 048
     Dates: start: 20091123
  23. CLOTRIMAZOLE W/BETAMETHASONE DIPROPIONAT [Concomitant]
     Route: 061
  24. BACTROBAN [Concomitant]
     Dosage: 2 UNK, UNK
     Route: 061
     Dates: start: 20060823

REACTIONS (4)
  - ABDOMINAL PAIN UPPER [None]
  - GALLBLADDER NON-FUNCTIONING [None]
  - BILIARY DYSKINESIA [None]
  - CHOLECYSTITIS CHRONIC [None]
